FAERS Safety Report 7216898-8 (Version None)
Quarter: 2011Q1

REPORT INFORMATION
  Report Type: 
  Country: None (occurrence: None)
  Receive Date: 20110110
  Receipt Date: 20101230
  Transmission Date: 20110831
  Serious: Yes (Death)
  Sender: FDA-Public Use
  Company Number: US-PAR PHARMACEUTICAL, INC-2011SCPR002363

PATIENT
  Age: 18 Year
  Sex: Female

DRUGS (1)
  1. PROPAFENONE HCL [Suspect]
     Indication: PRODUCT USED FOR UNKNOWN INDICATION
     Dosage: 50 TABLETS OF 150 MG
     Route: 048

REACTIONS (11)
  - ELECTROCARDIOGRAM QRS COMPLEX PROLONGED [None]
  - TACHYCARDIA [None]
  - INTENTIONAL SELF-INJURY [None]
  - PULMONARY OEDEMA [None]
  - COMPLETED SUICIDE [None]
  - UNRESPONSIVE TO STIMULI [None]
  - BRADYCARDIA [None]
  - OVERDOSE [None]
  - CARDIAC ARREST [None]
  - DEATH [None]
  - PULMONARY CONGESTION [None]
